FAERS Safety Report 20650977 (Version 1)
Quarter: 2022Q1

REPORT INFORMATION
  Report Type: Spontaneous
  Country: US (occurrence: US)
  Receive Date: 20220329
  Receipt Date: 20220329
  Transmission Date: 20220423
  Serious: Yes (Other)
  Sender: FDA-Public Use
  Company Number: US-BRISTOL-MYERS SQUIBB COMPANY-USA-20220304761

PATIENT
  Age: 70 Year
  Sex: Male
  Weight: 97.52 kg

DRUGS (11)
  1. REVLIMID [Suspect]
     Active Substance: LENALIDOMIDE
     Indication: Lymphoma
     Route: 048
     Dates: start: 20220223
  2. DECADRON [Concomitant]
     Active Substance: DEXAMETHASONE
     Indication: Plasma cell myeloma
     Dosage: FREQUENCY NOT PROVIDED
     Route: 048
     Dates: start: 20220216
  3. ASPIRIN [Concomitant]
     Active Substance: ASPIRIN
     Indication: Plasma cell myeloma
     Dosage: ADULT ORAL TABLET FREQUENCY NOT PROVIDED
     Route: 048
     Dates: start: 20220216
  4. ACYCLOVIR [Concomitant]
     Active Substance: ACYCLOVIR
     Indication: Plasma cell myeloma
     Dosage: FREQUENCY NOT PROVIDED
     Route: 048
     Dates: start: 20220209
  5. BACTRIM DS [Concomitant]
     Active Substance: SULFAMETHOXAZOLE\TRIMETHOPRIM
     Indication: Plasma cell myeloma
     Dosage: 800-160MG FREQUENCY NOT PROVIDED
     Route: 048
     Dates: start: 20220209
  6. DARZALEX FASPRO [Concomitant]
     Active Substance: DARATUMUMAB\HYALURONIDASE-FIHJ
     Indication: Plasma cell myeloma
     Dosage: 1800-30000 SUBCUTANEOUS SOLUTION
     Route: 058
     Dates: start: 20220216
  7. FOLIC ACID [Concomitant]
     Active Substance: FOLIC ACID
     Indication: Plasma cell myeloma
     Dosage: FREQUENCY NOT PROVIDED
     Route: 048
     Dates: start: 20220216
  8. LOSARTAN POTASSIUM [Concomitant]
     Active Substance: LOSARTAN POTASSIUM
     Indication: Plasma cell myeloma
     Dosage: FREQUENCY NOT PROVIDED
     Route: 048
     Dates: start: 20220216
  9. METFORMIN HYDROCHLORIDE [Concomitant]
     Active Substance: METFORMIN HYDROCHLORIDE
     Indication: Plasma cell myeloma
     Route: 048
     Dates: start: 20220216
  10. MIRALAX [Concomitant]
     Active Substance: POLYETHYLENE GLYCOL 3350
     Indication: Plasma cell myeloma
     Dosage: ORAL PACKET
     Route: 048
  11. OMEPRAZOLE [Concomitant]
     Active Substance: OMEPRAZOLE
     Indication: Plasma cell myeloma
     Route: 048
     Dates: start: 20220216

REACTIONS (1)
  - Thrombocytopenia [Unknown]

NARRATIVE: CASE EVENT DATE: 20220302
